FAERS Safety Report 5910475-4 (Version None)
Quarter: 2008Q4

REPORT INFORMATION
  Report Type: 
  Country: None (occurrence: None)
  Receive Date: 20081006
  Receipt Date: 20081006
  Transmission Date: 20090506
  Serious: Yes (Hospitalization)
  Sender: FDA-Public Use
  Company Number: None

PATIENT
  Age: 74 Year
  Sex: Female
  Weight: 42.6381 kg

DRUGS (6)
  1. RITUXIMAB [Suspect]
     Indication: DIFFUSE LARGE B-CELL LYMPHOMA
     Dosage: EVERY 2 WEEKS IV
     Route: 042
     Dates: start: 20080730, end: 20080918
  2. CYTOXAN [Suspect]
     Indication: DIFFUSE LARGE B-CELL LYMPHOMA
     Dosage: EVERY 2 WEEKS IV
     Route: 042
     Dates: start: 20080730, end: 20080918
  3. DOXORUBICIN HCL [Suspect]
     Indication: DIFFUSE LARGE B-CELL LYMPHOMA
     Dosage: EVERY 2 WEEKS IV
     Route: 042
     Dates: start: 20080730, end: 20080918
  4. VINCRISTINE [Suspect]
     Indication: DIFFUSE LARGE B-CELL LYMPHOMA
     Dosage: EVERY 2 WEEKS IV
     Route: 042
     Dates: start: 20080730, end: 20080918
  5. PREDNISOLONE [Suspect]
     Indication: DIFFUSE LARGE B-CELL LYMPHOMA
     Dosage: EVERY 2 WEEKS IV
     Route: 042
     Dates: start: 20080730, end: 20080918
  6. LEUKINE [Suspect]
     Indication: DIFFUSE LARGE B-CELL LYMPHOMA
     Dosage: EVERY 2 WEEKS IV
     Route: 042
     Dates: start: 20080730, end: 20080918

REACTIONS (3)
  - CULTURE URINE POSITIVE [None]
  - ESCHERICHIA INFECTION [None]
  - FEBRILE NEUTROPENIA [None]
